FAERS Safety Report 8985085 (Version 1)
Quarter: 2012Q4

REPORT INFORMATION
  Report Type: 
  Country: US (occurrence: US)
  Receive Date: 20121226
  Receipt Date: 20121226
  Transmission Date: 20130627
  Serious: No
  Sender: FDA-Public Use
  Company Number: US-PFIZER INC-2012326909

PATIENT
  Age: 51 Year
  Sex: Female
  Weight: 54.42 kg

DRUGS (2)
  1. PRISTIQ [Suspect]
     Indication: CONCENTRATION LOSS
     Dosage: 50 mg, daily
     Dates: start: 2012, end: 20121216
  2. PRISTIQ [Suspect]
     Dosage: 25 mg, daily
     Dates: start: 20121217

REACTIONS (1)
  - Insomnia [Recovered/Resolved]
